FAERS Safety Report 14825781 (Version 1)
Quarter: 2018Q2

REPORT INFORMATION
  Report Type: Report from Study
  Country: None (occurrence: DE)
  Receive Date: 20180430
  Receipt Date: 20180430
  Transmission Date: 20180711
  Serious: Yes (Hospitalization)
  Sender: FDA-Public Use
  Company Number: DE-ABBVIE-18K-062-2333538-00

PATIENT
  Age: 67 Year
  Sex: Female

DRUGS (5)
  1. HUMIRA [Suspect]
     Active Substance: ADALIMUMAB
     Indication: PSORIASIS
     Route: 058
     Dates: start: 201003
  2. HUMIRA [Suspect]
     Active Substance: ADALIMUMAB
     Indication: PSORIASIS
     Route: 058
  3. HUMIRA [Suspect]
     Active Substance: ADALIMUMAB
     Indication: PSORIATIC ARTHROPATHY
  4. ASPIRIN. [Suspect]
     Active Substance: ASPIRIN
     Indication: PRODUCT USED FOR UNKNOWN INDICATION
     Route: 065
  5. HUMIRA [Suspect]
     Active Substance: ADALIMUMAB
     Indication: PSORIATIC ARTHROPATHY

REACTIONS (21)
  - Gait disturbance [Unknown]
  - Tongue blistering [Recovered/Resolved]
  - Vitamin D deficiency [Not Recovered/Not Resolved]
  - Swollen tongue [Recovered/Resolved]
  - Epistaxis [Not Recovered/Not Resolved]
  - Swelling [Recovered/Resolved]
  - Tinnitus [Not Recovered/Not Resolved]
  - Angioedema [Unknown]
  - Swollen tongue [Recovered/Resolved]
  - Swelling face [Recovered/Resolved]
  - Psoriatic arthropathy [Not Recovered/Not Resolved]
  - Tongue blistering [Recovered/Resolved]
  - Peripheral swelling [Recovered/Resolved]
  - Hereditary angioedema with C1 esterase inhibitor deficiency [Unknown]
  - Peripheral swelling [Recovered/Resolved]
  - Rash papular [Not Recovered/Not Resolved]
  - Tongue disorder [Unknown]
  - Swelling [Recovered/Resolved]
  - Hypertension [Recovering/Resolving]
  - Tongue blistering [Recovered/Resolved]
  - Swelling face [Recovered/Resolved]

NARRATIVE: CASE EVENT DATE: 20160422
